FAERS Safety Report 7312674-6 (Version None)
Quarter: 2011Q1

REPORT INFORMATION
  Report Type: 
  Country: None (occurrence: None)
  Receive Date: 20110224
  Receipt Date: 20101116
  Transmission Date: 20110831
  Serious: No
  Sender: FDA-Public Use
  Company Number: US-ASTRAZENECA-2010SE54659

PATIENT
  Sex: Female

DRUGS (5)
  1. ADDERALL 10 [Concomitant]
  2. VIMOVO [Suspect]
     Indication: RHEUMATOID ARTHRITIS
     Dosage: BID
     Route: 048
     Dates: start: 20101101
  3. XANAX [Concomitant]
  4. PREDNISONE [Concomitant]
  5. CYMBALTA [Concomitant]

REACTIONS (3)
  - GASTRIC DISORDER [None]
  - THERAPEUTIC RESPONSE UNEXPECTED [None]
  - WEIGHT INCREASED [None]
